FAERS Safety Report 11119762 (Version 1)
Quarter: 2015Q2

REPORT INFORMATION
  Report Type: Spontaneous
  Country: US (occurrence: US)
  Receive Date: 20150518
  Receipt Date: 20150518
  Transmission Date: 20150821
  Serious: Yes (Other)
  Sender: FDA-Public Use
  Company Number: US-ALLERGAN-1509119US

PATIENT
  Sex: Female

DRUGS (1)
  1. REFRESH OPTIVE ADVANCED [Suspect]
     Active Substance: CARBOXYMETHYLCELLULOSE SODIUM\GLYCERIN\POLYSORBATE 80
     Indication: DRY EYE
     Dosage: UNK
     Route: 047

REACTIONS (3)
  - Dysgeusia [Not Recovered/Not Resolved]
  - Uveitis [Not Recovered/Not Resolved]
  - Retinal detachment [Unknown]

NARRATIVE: CASE EVENT DATE: 201505
